FAERS Safety Report 13042747 (Version 1)
Quarter: 2016Q4

REPORT INFORMATION
  Report Type: Spontaneous
  Country: HR (occurrence: HR)
  Receive Date: 20161219
  Receipt Date: 20161219
  Transmission Date: 20170207
  Serious: Yes (Other)
  Sender: FDA-Public Use
  Company Number: HR-ABBVIE-16P-216-1815353-00

PATIENT
  Age: 79 Year
  Sex: Female

DRUGS (2)
  1. TARKA [Suspect]
     Active Substance: TRANDOLAPRIL\VERAPAMIL HYDROCHLORIDE
     Indication: HYPERTENSION
     Route: 048
     Dates: start: 201609
  2. NORPREXANIL (AMLODIPINE BESILATE, PERINDOPRIL ARGININE) [Suspect]
     Active Substance: AMLODIPINE BESYLATE\PERINDOPRIL ARGININE
     Indication: HYPERTENSION
     Dosage: 5/5 DAILY DOSE
     Route: 048
     Dates: start: 201609, end: 201609

REACTIONS (4)
  - Heart rate decreased [Unknown]
  - Heart rate increased [Recovered/Resolved]
  - Peripheral pulse decreased [Recovered/Resolved]
  - Palpitations [Unknown]

NARRATIVE: CASE EVENT DATE: 201609
